FAERS Safety Report 15757255 (Version 4)
Quarter: 2019Q4

REPORT INFORMATION
  Report Type: Report from Study
  Country: BR (occurrence: BR)
  Receive Date: 20181224
  Receipt Date: 20191212
  Transmission Date: 20200122
  Serious: Yes (Life-Threatening, Hospitalization)
  Sender: FDA-Public Use
  Company Number: PHHY2018BR192113

PATIENT
  Age: 57 Year
  Sex: Female

DRUGS (4)
  1. ACLASTA [Suspect]
     Active Substance: ZOLEDRONIC ACID
     Indication: PRODUCT USED FOR UNKNOWN INDICATION
     Dosage: UNK
     Route: 065
     Dates: start: 20181214
  2. VITAMIN D [Concomitant]
     Active Substance: VITAMIN D NOS
     Indication: PRODUCT USED FOR UNKNOWN INDICATION
     Route: 065
  3. CALCIUM [Concomitant]
     Active Substance: CALCIUM
     Indication: PRODUCT USED FOR UNKNOWN INDICATION
     Route: 065
  4. CLAVULIN BD [Suspect]
     Active Substance: AMOXICILLIN\CLAVULANATE POTASSIUM
     Indication: TOOTHACHE
     Route: 065

REACTIONS (32)
  - Feeling cold [Recovered/Resolved]
  - Asthenia [Unknown]
  - Eye pain [Unknown]
  - Musculoskeletal stiffness [Not Recovered/Not Resolved]
  - Hypotension [Unknown]
  - Abdominal pain [Recovered/Resolved]
  - Injury [Not Recovered/Not Resolved]
  - Peripheral swelling [Not Recovered/Not Resolved]
  - Erythema [Not Recovered/Not Resolved]
  - Decreased appetite [Unknown]
  - Drug hypersensitivity [Unknown]
  - Injection site vesicles [Unknown]
  - Hypersensitivity [Unknown]
  - Headache [Not Recovered/Not Resolved]
  - Urine output decreased [Not Recovered/Not Resolved]
  - Chills [Unknown]
  - Nervousness [Unknown]
  - Blister [Unknown]
  - Pruritus [Unknown]
  - Malaise [Not Recovered/Not Resolved]
  - Pain [Unknown]
  - Urticaria [Not Recovered/Not Resolved]
  - Confusional state [Unknown]
  - Chronic spontaneous urticaria [Unknown]
  - Laryngospasm [Unknown]
  - Pyrexia [Unknown]
  - Retching [Recovered/Resolved]
  - Ocular hyperaemia [Unknown]
  - Dysphagia [Unknown]
  - Anaphylactic shock [Unknown]
  - Administration site calcification [Unknown]
  - Toothache [Unknown]

NARRATIVE: CASE EVENT DATE: 201812
